FAERS Safety Report 4821647-4 (Version None)
Quarter: 2005Q4

REPORT INFORMATION
  Report Type: 
  Country: None (occurrence: None)
  Receive Date: 20051107
  Receipt Date: 20051025
  Transmission Date: 20060501
  Serious: Yes (Other)
  Sender: FDA-Public Use
  Company Number: 2005GB02092

PATIENT
  Sex: Male

DRUGS (1)
  1. TENORETIC 100 [Suspect]
     Indication: BLOOD PRESSURE ABNORMAL
     Route: 048
     Dates: start: 20040101

REACTIONS (1)
  - TERATOSPERMIA [None]
